FAERS Safety Report 9299380 (Version 2)
Quarter: 2013Q4

REPORT INFORMATION
  Report Type: Spontaneous
  Country: US (occurrence: US)
  Receive Date: 20130520
  Receipt Date: 20131108
  Transmission Date: 20140711
  Serious: Yes (Hospitalization, Other)
  Sender: FDA-Public Use
  Company Number: US-B.I. PHARMACEUTICALS,INC./RIDGEFIELD-2013-BI-13781BP

PATIENT
  Age: 68 Year
  Sex: Female
  Weight: 63.5 kg

DRUGS (8)
  1. PRADAXA [Suspect]
     Indication: ANTICOAGULANT THERAPY
     Dosage: 300 MG
     Route: 048
     Dates: start: 20120301, end: 20120402
  2. SYNTHROID [Concomitant]
     Indication: HYPOTHYROIDISM
     Dosage: 100 MCG
     Route: 048
  3. FLECAINIDE ACETATE [Concomitant]
     Dosage: 200 MG
     Route: 048
  4. NEXIUM [Concomitant]
     Dosage: 40 MG
     Route: 048
  5. TEMAZEPAM [Concomitant]
     Dosage: 15 MG
  6. AVONEX [Concomitant]
     Dosage: 4.2857 MCG
     Route: 030
  7. LETAIRIS [Concomitant]
     Dosage: 10 MG
     Route: 048
  8. XANAX [Concomitant]
     Dosage: 1 MG

REACTIONS (4)
  - Rectal haemorrhage [Recovered/Resolved]
  - Pleural effusion [Unknown]
  - Anaemia [Unknown]
  - Epistaxis [Unknown]
